FAERS Safety Report 17988789 (Version 1)
Quarter: 2020Q3

REPORT INFORMATION
  Report Type: Report from Study
  Country: KR (occurrence: KR)
  Receive Date: 20200707
  Receipt Date: 20200707
  Transmission Date: 20201103
  Serious: Yes (Other)
  Sender: FDA-Public Use
  Company Number: KR-ROCHE-2634766

PATIENT

DRUGS (1)
  1. OSELTAMIVIR [Suspect]
     Active Substance: OSELTAMIVIR
     Indication: INFLUENZA
     Route: 065

REACTIONS (12)
  - Pneumonia [Unknown]
  - Diarrhoea [Unknown]
  - Nausea [Unknown]
  - Headache [Unknown]
  - Bronchitis [Unknown]
  - Abdominal pain [Unknown]
  - Vomiting [Unknown]
  - Dizziness [Unknown]
  - Nervous system disorder [Unknown]
  - Transaminases increased [Unknown]
  - Rash [Unknown]
  - Insomnia [Unknown]
